FAERS Safety Report 7995256-2 (Version None)
Quarter: 2011Q4

REPORT INFORMATION
  Report Type: 
  Country: None (occurrence: None)
  Receive Date: 20111220
  Receipt Date: 20111220
  Transmission Date: 20120403
  Serious: Yes (Other)
  Sender: FDA-Public Use
  Company Number: None

PATIENT
  Age: 49 Year
  Sex: Male
  Weight: 122 kg

DRUGS (12)
  1. INSULIN ASAPRT [Concomitant]
  2. FERROUS SULFATE TAB [Concomitant]
  3. AMARYL [Concomitant]
  4. NPH INSULIN [Concomitant]
  5. MORPHINE [Concomitant]
  6. CEFTAROLINE [Suspect]
     Indication: OSTEOMYELITIS
     Dosage: CEFTRALINE
     Route: 042
     Dates: start: 20111111, end: 20111206
  7. TRILEPTAL [Concomitant]
  8. METFORMIN HCL [Concomitant]
  9. SOMA [Concomitant]
  10. TOPAMAX [Concomitant]
  11. PERCOCET [Concomitant]
  12. COLACE [Concomitant]

REACTIONS (3)
  - OFF LABEL USE [None]
  - DRUG TOLERANCE DECREASED [None]
  - NAUSEA [None]
